FAERS Safety Report 6263586-0 (Version None)
Quarter: 2009Q3

REPORT INFORMATION
  Report Type: 
  Country: None (occurrence: None)
  Receive Date: 20090710
  Receipt Date: 20090513
  Transmission Date: 20100115
  Serious: No
  Sender: FDA-Public Use
  Company Number: A0784131A

PATIENT
  Age: 60 Year
  Sex: Male

DRUGS (10)
  1. TYKERB [Suspect]
     Indication: BREAST CANCER
     Dosage: 5TAB PER DAY
     Route: 048
     Dates: start: 20090409
  2. CYMBALTA [Concomitant]
  3. ATIVAN [Concomitant]
  4. XELODA [Concomitant]
  5. MILK OF MAGNESIUM [Concomitant]
  6. SULAR [Concomitant]
  7. TUMS [Concomitant]
  8. AMBIEN CR [Concomitant]
  9. HYDROCODONE BITARTRATE [Concomitant]
  10. DURAGESIC-100 [Concomitant]

REACTIONS (6)
  - DYSSTASIA [None]
  - FATIGUE [None]
  - PRURITUS [None]
  - SKIN DISCOLOURATION [None]
  - SKIN EXFOLIATION [None]
  - STOMATITIS [None]
